FAERS Safety Report 5709912-X (Version None)
Quarter: 2008Q2

REPORT INFORMATION
  Report Type: 
  Country: None (occurrence: None)
  Receive Date: 20080418
  Receipt Date: 20070529
  Transmission Date: 20081010
  Serious: No
  Sender: FDA-Public Use
  Company Number: US-ASTRAZENECA-2007UW13108

PATIENT
  Age: 85 Year
  Sex: Female

DRUGS (11)
  1. TOPROL-XL [Suspect]
     Route: 048
  2. TOPROL-XL [Suspect]
     Route: 048
  3. TOPROL-XL [Suspect]
     Route: 048
  4. PULMICORT RESPULES [Concomitant]
     Route: 055
  5. COUMADIN [Concomitant]
  6. DILTIAZEM [Concomitant]
  7. PAROXETINE HCL [Concomitant]
     Dosage: 20 MG CUT IN HALF TO 10 MG
  8. FUROSEMIDE [Concomitant]
  9. NORTRIPTYLINE HCL [Concomitant]
  10. LORAZEPAM [Concomitant]
  11. NITROFURANTOIN [Concomitant]
     Indication: CYSTITIS

REACTIONS (3)
  - ASTHMA [None]
  - COUGH [None]
  - DYSPNOEA [None]
